FAERS Safety Report 5472643-8 (Version None)
Quarter: 2007Q4

REPORT INFORMATION
  Report Type: 
  Country: None (occurrence: None)
  Receive Date: 20071001
  Receipt Date: 20060911
  Transmission Date: 20080405
  Serious: No
  Sender: FDA-Public Use
  Company Number: US-ASTRAZENECA-2006UW17682

PATIENT
  Age: 60 Year
  Sex: Female
  Weight: 68 kg

DRUGS (6)
  1. ARIMIDEX [Suspect]
     Indication: BREAST CANCER
     Route: 048
     Dates: start: 20010101
  2. ALLEGRA D 24 HOUR [Concomitant]
  3. THEO-DUR [Concomitant]
  4. PULMICORT [Concomitant]
  5. PREVACID [Concomitant]
  6. FLONASE [Concomitant]

REACTIONS (7)
  - ARTHRALGIA [None]
  - ASTHMA [None]
  - BACK PAIN [None]
  - BONE PAIN [None]
  - DYSPNOEA [None]
  - FATIGUE [None]
  - HOT FLUSH [None]
